FAERS Safety Report 16767281 (Version 2)
Quarter: 2019Q3

REPORT INFORMATION
  Report Type: Spontaneous
  Country: US (occurrence: US)
  Receive Date: 20190903
  Receipt Date: 20190903
  Transmission Date: 20191005
  Serious: No
  Sender: FDA-Public Use
  Company Number: US-PFIZER INC-2019374440

PATIENT
  Age: 86 Year
  Sex: Female
  Weight: 61.68 kg

DRUGS (2)
  1. ADVIL [Suspect]
     Active Substance: IBUPROFEN
     Indication: PAIN
     Dosage: 2 DF, 4X/DAY (2 TABLETS EVERY 6 HOURS)
  2. ADVIL [Suspect]
     Active Substance: IBUPROFEN
     Dosage: 400 MG, 3X/DAY

REACTIONS (2)
  - Hypoacusis [Unknown]
  - Constipation [Unknown]
